FAERS Safety Report 6713679-6 (Version None)
Quarter: 2010Q2

REPORT INFORMATION
  Report Type: 
  Country: None (occurrence: None)
  Receive Date: 20100426
  Receipt Date: 20091217
  Transmission Date: 20101027
  Serious: Yes (Hospitalization)
  Sender: FDA-Public Use
  Company Number: 2009BI039846

PATIENT
  Age: 46 Year
  Sex: Male

DRUGS (3)
  1. TYSABRI [Suspect]
     Indication: MULTIPLE SCLEROSIS
     Dosage: 300 MG; QM; IV
     Route: 042
     Dates: start: 20070611
  2. CON MEDS [Concomitant]
  3. AVONEX (PREV.) [Concomitant]

REACTIONS (2)
  - BALANCE DISORDER [None]
  - ESCHERICHIA URINARY TRACT INFECTION [None]
